FAERS Safety Report 5575968-0 (Version None)
Quarter: 2007Q4

REPORT INFORMATION
  Report Type: 
  Country: None (occurrence: None)
  Receive Date: 20071228
  Receipt Date: 20071220
  Transmission Date: 20080405
  Serious: Yes (Hospitalization)
  Sender: FDA-Public Use
  Company Number: PHNR2007AU02212

PATIENT
  Age: 36 Year
  Sex: Male

DRUGS (12)
  1. OMEPRAZOLE [Concomitant]
     Dosage: 40 MG, QD MANE
     Route: 048
  2. CILOXAN [Concomitant]
     Dosage: UNK, TID
     Route: 061
  3. CLEXANE [Concomitant]
     Dosage: 100 MG, BID
     Route: 058
  4. PHENYTOIN [Concomitant]
     Dosage: 450 MG, QD NOCTE
     Route: 048
  5. MEROPENEM [Concomitant]
     Dosage: 2 G, 8 HOURSLY
     Route: 042
  6. MULTIVITAMIN PREPARATIONS WITH OR W/O MINERAL [Concomitant]
     Dosage: UNK, QD
     Route: 048
  7. RISPERIDONE [Concomitant]
     Dosage: CONSTA 50 MG, QW
     Route: 030
  8. CHLORVESCENT [Concomitant]
     Dosage: 2 TABLETS, BID
     Route: 048
  9. VANCOMYCIN [Suspect]
     Dates: start: 20071025
  10. CLOZARIL [Suspect]
     Dosage: 12.5 MG /D
     Dates: start: 20071219
  11. CLOZARIL [Suspect]
     Dosage: 0-300MG DAILY
     Route: 048
     Dates: start: 20020524, end: 20020710
  12. CLOZARIL [Suspect]
     Dosage: 0-300 MG DAILY
     Route: 048
     Dates: start: 20061129, end: 20071006

REACTIONS (9)
  - ABSCESS [None]
  - CAVERNOUS SINUS THROMBOSIS [None]
  - HEMIPARESIS [None]
  - LEUKOPENIA [None]
  - MENTAL DISORDER [None]
  - NEUTROPENIA [None]
  - NEUTROPHIL COUNT INCREASED [None]
  - SUBDURAL EMPYEMA [None]
  - WHITE BLOOD CELL COUNT INCREASED [None]
